FAERS Safety Report 7741169-0 (Version None)
Quarter: 2011Q3

REPORT INFORMATION
  Report Type: 
  Country: None (occurrence: None)
  Receive Date: 20110909
  Receipt Date: 20110829
  Transmission Date: 20111222
  Serious: No
  Sender: FDA-Public Use
  Company Number: CH-ELI_LILLY_AND_COMPANY-CH201108009480

PATIENT
  Age: 78 Year
  Sex: Male

DRUGS (4)
  1. CLOZAPINE [Concomitant]
     Dosage: 25 MG, QD
     Route: 048
  2. ZYPREXA [Suspect]
     Dosage: 2.5 MG, QD
     Route: 048
  3. ZYPREXA [Suspect]
     Dosage: 10 MG, QD
     Route: 048
  4. CYMBALTA [Suspect]
     Dosage: 60 MG, QD
     Route: 048

REACTIONS (2)
  - FULL BLOOD COUNT ABNORMAL [None]
  - SINUS TACHYCARDIA [None]
